FAERS Safety Report 6844279-5 (Version None)
Quarter: 2010Q3

REPORT INFORMATION
  Report Type: 
  Country: None (occurrence: None)
  Receive Date: 20100715
  Receipt Date: 20100706
  Transmission Date: 20110219
  Serious: Yes (Hospitalization, Other)
  Sender: FDA-Public Use
  Company Number: US-PFIZER INC-2010056225

PATIENT
  Sex: Female
  Weight: 54.422 kg

DRUGS (3)
  1. GEODON [Suspect]
     Indication: AFFECTIVE DISORDER
     Dosage: 40 MG, 2X/DAY
     Dates: start: 20100413, end: 20100418
  2. GEODON [Suspect]
     Indication: BIPOLAR DISORDER
  3. AMBIEN [Concomitant]
     Dosage: 10 MG, UNK
     Dates: start: 20100209, end: 20100501

REACTIONS (1)
  - ANAPHYLACTIC REACTION [None]
